FAERS Safety Report 4459413-4 (Version None)
Quarter: 2004Q3

REPORT INFORMATION
  Report Type: 
  Country: None (occurrence: None)
  Receive Date: 20040927
  Receipt Date: 20040923
  Transmission Date: 20050211
  Serious: Yes (Other)
  Sender: FDA-Public Use
  Company Number: US-GLAXOSMITHKLINE-A0527124A

PATIENT
  Sex: Male

DRUGS (2)
  1. ZYBAN [Suspect]
     Route: 048
  2. NO CONCURRENT MEDICATION [Concomitant]

REACTIONS (4)
  - ACCIDENT AT WORK [None]
  - AMNESIA [None]
  - CONVULSION [None]
  - ROAD TRAFFIC ACCIDENT [None]
